FAERS Safety Report 16235154 (Version 4)
Quarter: 2023Q1

REPORT INFORMATION
  Report Type: Spontaneous
  Country: US (occurrence: None)
  Receive Date: 20190424
  Receipt Date: 20230131
  Transmission Date: 20230418
  Serious: Yes (Death, Other)
  Sender: FDA-Public Use
  Company Number: 2019SE58428

PATIENT
  Age: 20372 Day
  Sex: Female
  Weight: 52.2 kg

DRUGS (86)
  1. NEXIUM [Suspect]
     Active Substance: ESOMEPRAZOLE MAGNESIUM
     Indication: Gastrooesophageal reflux disease
     Route: 048
     Dates: start: 199901, end: 200312
  2. NEXIUM [Suspect]
     Active Substance: ESOMEPRAZOLE MAGNESIUM
     Indication: Gastrooesophageal reflux disease
     Route: 048
     Dates: start: 2009, end: 2013
  3. NEXIUM 24HR [Suspect]
     Active Substance: ESOMEPRAZOLE MAGNESIUM
     Indication: Gastrooesophageal reflux disease
     Route: 048
     Dates: start: 2014, end: 2018
  4. PRILOSEC [Suspect]
     Active Substance: OMEPRAZOLE MAGNESIUM
     Indication: Gastrooesophageal reflux disease
     Route: 048
     Dates: start: 199901, end: 200312
  5. PRILOSEC [Suspect]
     Active Substance: OMEPRAZOLE MAGNESIUM
     Indication: Gastrooesophageal reflux disease
     Route: 048
     Dates: start: 199901, end: 200312
  6. PRILOSEC OTC [Suspect]
     Active Substance: OMEPRAZOLE MAGNESIUM
     Indication: Gastrooesophageal reflux disease
     Route: 048
     Dates: start: 199901, end: 200312
  7. PRILOSEC OTC [Suspect]
     Active Substance: OMEPRAZOLE MAGNESIUM
     Indication: Gastrooesophageal reflux disease
     Dosage: AS NEEDED
     Route: 048
     Dates: start: 2003, end: 2005
  8. PROTONIX [Suspect]
     Active Substance: PANTOPRAZOLE SODIUM
     Indication: Gastrooesophageal reflux disease
     Route: 065
     Dates: start: 199901, end: 200312
  9. PROTONIX [Suspect]
     Active Substance: PANTOPRAZOLE SODIUM
     Indication: Gastrooesophageal reflux disease
     Route: 065
     Dates: start: 200002, end: 20151020
  10. PROTONIX [Suspect]
     Active Substance: PANTOPRAZOLE SODIUM
     Indication: Gastrooesophageal reflux disease
     Dosage: GENERIC
     Route: 065
     Dates: start: 20110311, end: 20150903
  11. LISINOPRIL [Concomitant]
     Active Substance: LISINOPRIL
     Indication: Blood pressure abnormal
     Dates: start: 199802, end: 200607
  12. NORVASC [Concomitant]
     Active Substance: AMLODIPINE BESYLATE
     Indication: Blood pressure abnormal
     Dates: start: 200007, end: 201702
  13. FUROSEMIDE [Concomitant]
     Active Substance: FUROSEMIDE
     Indication: Blood pressure abnormal
     Dates: start: 200003, end: 201203
  14. BENZONATATE [Concomitant]
     Active Substance: BENZONATATE
     Indication: Pneumonia
     Dates: start: 201009, end: 201501
  15. ULTRAM [Concomitant]
     Active Substance: TRAMADOL HYDROCHLORIDE
     Indication: Analgesic therapy
     Dates: start: 201311, end: 201606
  16. CARVEDILOL [Concomitant]
     Active Substance: CARVEDILOL
     Indication: Blood pressure abnormal
     Dates: start: 201404, end: 201702
  17. METOPROLOL TARTRATE [Concomitant]
     Active Substance: METOPROLOL TARTRATE
     Indication: Blood pressure abnormal
     Dates: start: 201202, end: 201406
  18. PRAVACHOL [Concomitant]
     Active Substance: PRAVASTATIN SODIUM
     Indication: Blood cholesterol abnormal
     Dates: start: 201504, end: 201602
  19. COUMADIN [Concomitant]
     Active Substance: WARFARIN SODIUM
     Indication: Thrombosis
     Dates: start: 201510, end: 201602
  20. LANTUS [Concomitant]
     Active Substance: INSULIN GLARGINE
     Indication: Diabetes mellitus
     Dates: start: 2009, end: 2017
  21. ZITHROMAX [Concomitant]
     Active Substance: AZITHROMYCIN DIHYDRATE
     Indication: Nasopharyngitis
     Dates: start: 200003
  22. ZITHROMAX [Concomitant]
     Active Substance: AZITHROMYCIN DIHYDRATE
     Indication: Influenza
     Dates: start: 200003
  23. ROCEPHIN [Concomitant]
     Active Substance: CEFTRIAXONE SODIUM
     Indication: Infection
     Dates: start: 200411
  24. DOXYCYCLINE HYCLATE [Concomitant]
     Active Substance: DOXYCYCLINE HYCLATE
     Indication: Infection
     Dates: start: 201212
  25. VANCOMYCIN [Concomitant]
     Active Substance: VANCOMYCIN
     Indication: Pneumonia
     Dates: start: 201510
  26. LIPITOR [Concomitant]
     Active Substance: ATORVASTATIN CALCIUM
     Indication: Blood cholesterol abnormal
     Dates: start: 2002, end: 2005
  27. TYLENOL [Concomitant]
     Active Substance: ACETAMINOPHEN
     Indication: Analgesic therapy
     Dates: start: 1998, end: 2018
  28. VITAMINS [Concomitant]
     Active Substance: VITAMINS
     Indication: Supplementation therapy
     Dates: start: 1998, end: 2018
  29. BENADRYL [Concomitant]
     Active Substance: DIPHENHYDRAMINE HYDROCHLORIDE
     Indication: Hypersensitivity
     Dates: start: 1998, end: 2018
  30. NIZATIDINE [Concomitant]
     Active Substance: NIZATIDINE
  31. ZANTAC [Concomitant]
     Active Substance: RANITIDINE HYDROCHLORIDE
     Dates: start: 200302
  32. TUMS [Concomitant]
     Active Substance: CALCIUM CARBONATE
     Dosage: 2-4 TABLETS AS NEEDED
     Dates: start: 2008, end: 2018
  33. TUSSIONEX PENNKINETIC [Concomitant]
     Active Substance: CHLORPHENIRAMINE\HYDROCODONE
  34. HUMULIN NOS [Concomitant]
     Active Substance: INSULIN HUMAN
  35. HYDROCODONE/PARACETAMOL/ETHANOL [Concomitant]
  36. ZYMAR [Concomitant]
     Active Substance: GATIFLOXACIN
  37. CEPHALEXIN [Concomitant]
     Active Substance: CEPHALEXIN
  38. LABETALOL [Concomitant]
     Active Substance: LABETALOL\LABETALOL HYDROCHLORIDE
  39. METOPROLOL [Concomitant]
     Active Substance: METOPROLOL
  40. OXYCODONE AND ACETAMINOPHEN [Concomitant]
     Active Substance: ACETAMINOPHEN\OXYCODONE HYDROCHLORIDE
  41. AMLODIPINE BESYLATE [Concomitant]
     Active Substance: AMLODIPINE BESYLATE
  42. NASTURTIUM OFFICINALE/SODIUM SULFATE/MYOSOTIS ARVENSIS/GERANIUM ROBERT [Concomitant]
  43. PRAVASTATIN [Concomitant]
     Active Substance: PRAVASTATIN
  44. WARFARIN [Concomitant]
     Active Substance: WARFARIN
  45. NITROFURANTOIN [Concomitant]
     Active Substance: NITROFURANTOIN
  46. SODIUM BICARBONATE [Concomitant]
     Active Substance: SODIUM BICARBONATE
  47. CIPROFLOXACIN [Concomitant]
     Active Substance: CIPROFLOXACIN
  48. CLINDAMYCIN [Concomitant]
     Active Substance: CLINDAMYCIN
  49. ERYTHROMYCIN [Concomitant]
     Active Substance: ERYTHROMYCIN
  50. GABAPENTIN [Concomitant]
     Active Substance: GABAPENTIN
  51. AVANDIA [Concomitant]
     Active Substance: ROSIGLITAZONE MALEATE
  52. TRIMETHOPRIM [Concomitant]
     Active Substance: TRIMETHOPRIM
  53. CEFPODOXIME PROXETIL/AZITHROMYCIN [Concomitant]
  54. AMMONIUM CHLORIDE\DEXTROMETHORPHAN\SODIUM CITRATE [Concomitant]
     Active Substance: AMMONIUM CHLORIDE\DEXTROMETHORPHAN\SODIUM CITRATE
  55. MUPIROCIN [Concomitant]
     Active Substance: MUPIROCIN
  56. SYMBICORT [Concomitant]
     Active Substance: BUDESONIDE\FORMOTEROL FUMARATE DIHYDRATE
  57. ACETAMINOPHEN\BUTALBITAL [Concomitant]
     Active Substance: ACETAMINOPHEN\BUTALBITAL
  58. PREDNISONE [Concomitant]
     Active Substance: PREDNISONE
  59. VENTOLIN HFA [Concomitant]
     Active Substance: ALBUTEROL SULFATE
  60. CLOBETASOL [Concomitant]
     Active Substance: CLOBETASOL
  61. VACCINIUM MACROCARPON FRUIT/BACILLUS COAGULANS/CALCIUM PHOSPHATE/ASCOR [Concomitant]
  62. KETOCONAZOLE [Concomitant]
     Active Substance: KETOCONAZOLE
  63. SULFAMETHOXAZOLE SODIUM/AMINOCAPROIC ACID/DIPOTASSIUM GLYCYRRHIZATE [Concomitant]
  64. CALCIUM [Concomitant]
     Active Substance: CALCIUM
  65. COLACE [Concomitant]
     Active Substance: DOCUSATE SODIUM
  66. POLYETHYLENE GLYCOL [Concomitant]
     Active Substance: POLYETHYLENE GLYCOL
  67. PHENYLEPHRINE HYDROCHLORIDE/GUAIFENESIN [Concomitant]
  68. VITAMIN D3 [Concomitant]
     Active Substance: CHOLECALCIFEROL
  69. VITAMIN E [Concomitant]
     Active Substance: .ALPHA.-TOCOPHEROL
  70. CRANBERRY [Concomitant]
     Active Substance: CRANBERRY
  71. SALINE [Concomitant]
     Active Substance: SODIUM CHLORIDE
  72. PENICILLIN [Concomitant]
     Active Substance: PENICILLIN
  73. ZOSYN [Concomitant]
     Active Substance: PIPERACILLIN SODIUM\TAZOBACTAM SODIUM
  74. SYSTANE (HYPROMELLOSE 2910 (4000 MPA.S)) [Concomitant]
     Active Substance: HYPROMELLOSE 2910 (4000 MPA.S)
  75. CYANOCOBALAMIN [Concomitant]
     Active Substance: CYANOCOBALAMIN
  76. SYNTHROID [Concomitant]
     Active Substance: LEVOTHYROXINE SODIUM
  77. IRON [Concomitant]
     Active Substance: IRON
  78. AQUAPHOR [Concomitant]
     Active Substance: PETROLATUM
  79. SENNOSIDES [Concomitant]
     Active Substance: SENNOSIDES
  80. ONDANSETRON HYDROCHLORIDE [Concomitant]
     Active Substance: ONDANSETRON HYDROCHLORIDE
  81. CHLORHEXIDINE [Concomitant]
     Active Substance: CHLORHEXIDINE
  82. HYDRALAZINE HYDROCHLORIDE [Concomitant]
     Active Substance: HYDRALAZINE HYDROCHLORIDE
  83. ZETIA [Concomitant]
     Active Substance: EZETIMIBE
  84. METHENAMINE [Concomitant]
     Active Substance: METHENAMINE
  85. HIPREX [Concomitant]
     Active Substance: METHENAMINE HIPPURATE
  86. PYRIDIUM [Concomitant]
     Active Substance: PHENAZOPYRIDINE

REACTIONS (6)
  - Sepsis [Fatal]
  - Chronic kidney disease [Unknown]
  - Acute kidney injury [Unknown]
  - End stage renal disease [Unknown]
  - Renal failure [Unknown]
  - Nephrogenic anaemia [Unknown]

NARRATIVE: CASE EVENT DATE: 20000424
